FAERS Safety Report 14699700 (Version 2)
Quarter: 2018Q2

REPORT INFORMATION
  Report Type: Spontaneous
  Country: US (occurrence: US)
  Receive Date: 20180330
  Receipt Date: 20180420
  Transmission Date: 20180711
  Serious: Yes (Other)
  Sender: FDA-Public Use
  Company Number: US-ELI_LILLY_AND_COMPANY-US201803009532

PATIENT
  Age: 53 Year
  Sex: Male
  Weight: 140.14 kg

DRUGS (4)
  1. BASAGLAR [Suspect]
     Active Substance: INSULIN GLARGINE
     Dosage: 60 U, EACH EVENING
     Route: 065
     Dates: start: 20180303, end: 20180321
  2. BASAGLAR [Suspect]
     Active Substance: INSULIN GLARGINE
     Dosage: 70 U, EACH MORNING
     Route: 065
     Dates: start: 20180303, end: 20180321
  3. METFORMIN [Concomitant]
     Active Substance: METFORMIN HYDROCHLORIDE
     Indication: DIABETES MELLITUS
     Dosage: 500 MG, UNK
  4. BASAGLAR [Suspect]
     Active Substance: INSULIN GLARGINE
     Indication: PRODUCT USED FOR UNKNOWN INDICATION
     Dosage: UNK UNK, UNKNOWN
     Route: 065

REACTIONS (7)
  - Pruritus [Recovered/Resolved]
  - Throat tightness [Recovered/Resolved]
  - Inappropriate schedule of drug administration [Unknown]
  - Scratch [Recovered/Resolved]
  - Skin haemorrhage [Recovered/Resolved]
  - Skin burning sensation [Recovered/Resolved]
  - Rash vesicular [Recovered/Resolved]

NARRATIVE: CASE EVENT DATE: 20180317
